FAERS Safety Report 8509482-7 (Version None)
Quarter: 2012Q3

REPORT INFORMATION
  Report Type: 
  Country: None (occurrence: None)
  Receive Date: 20120703
  Receipt Date: 20120618
  Transmission Date: 20120928
  Serious: Yes (Death, Other)
  Sender: FDA-Public Use
  Company Number: 2012MA007590

PATIENT
  Age: 41 Year
  Sex: Female

DRUGS (2)
  1. TOLPERISONE (TOLPERISONE) [Suspect]
  2. NAPROXEN [Suspect]

REACTIONS (4)
  - VISCERAL CONGESTION [None]
  - TOXICITY TO VARIOUS AGENTS [None]
  - PULMONARY OEDEMA [None]
  - COMPLETED SUICIDE [None]
